FAERS Safety Report 5328797-7 (Version None)
Quarter: 2007Q2

REPORT INFORMATION
  Report Type: 
  Country: None (occurrence: None)
  Receive Date: 20070518
  Receipt Date: 20070508
  Transmission Date: 20071010
  Serious: Yes (Death, Hospitalization, Other)
  Sender: FDA-Public Use
  Company Number: US-GENENTECH-240806

PATIENT
  Sex: Female

DRUGS (20)
  1. AVASTIN [Suspect]
     Indication: BREAST CANCER
     Dosage: 15 MG/KG, Q6W
     Dates: start: 20050517
  2. DOCETAXEL [Concomitant]
     Indication: DRUG USE FOR UNKNOWN INDICATION
     Dosage: 120 MG, UNK
     Dates: start: 20050426
  3. XELODA [Concomitant]
     Indication: DRUG USE FOR UNKNOWN INDICATION
     Dates: start: 20050426
  4. MITOXANTRONE [Concomitant]
     Indication: DRUG USE FOR UNKNOWN INDICATION
     Dosage: 10 MG, UNK
     Dates: start: 20050926
  5. CPT-11 [Concomitant]
     Indication: DRUG USE FOR UNKNOWN INDICATION
     Dosage: 125 MG, UNK
  6. ABRAXANE [Concomitant]
     Indication: DRUG USE FOR UNKNOWN INDICATION
     Dosage: 425 MG, UNK
  7. CARBOPLATIN [Concomitant]
     Indication: DRUG USE FOR UNKNOWN INDICATION
     Dosage: 580 MG, UNK
  8. DOXIL [Concomitant]
     Indication: DRUG USE FOR UNKNOWN INDICATION
     Dosage: 40 MG/M2, UNK
  9. GEMCITABINE [Concomitant]
     Indication: DRUG USE FOR UNKNOWN INDICATION
     Dosage: 1000 MG/M2, UNK
  10. ALIMTA [Concomitant]
     Indication: DRUG USE FOR UNKNOWN INDICATION
     Dosage: 800 MG, UNK
  11. CYTOXAN [Concomitant]
     Indication: DRUG USE FOR UNKNOWN INDICATION
     Dosage: 1025 MG, UNK
  12. ZOCOR [Concomitant]
     Indication: DRUG USE FOR UNKNOWN INDICATION
  13. ZOMETA [Concomitant]
     Indication: DRUG USE FOR UNKNOWN INDICATION
     Dosage: 4 MG, UNK
  14. LEXAPRO [Concomitant]
     Indication: DRUG USE FOR UNKNOWN INDICATION
  15. ZYRTEC [Concomitant]
     Indication: DRUG USE FOR UNKNOWN INDICATION
  16. VITAMIN B6 [Concomitant]
     Indication: DRUG USE FOR UNKNOWN INDICATION
  17. VITAMIN B-12 [Concomitant]
     Indication: DRUG USE FOR UNKNOWN INDICATION
  18. WARFARIN SODIUM [Concomitant]
     Indication: DRUG USE FOR UNKNOWN INDICATION
     Dosage: 0.5 MG, UNK
     Dates: start: 20060101, end: 20060301
  19. VICODIN [Concomitant]
     Indication: DRUG USE FOR UNKNOWN INDICATION
     Dosage: UNK, PRN
  20. REMERON [Concomitant]
     Indication: DRUG USE FOR UNKNOWN INDICATION

REACTIONS (1)
  - PULMONARY HYPERTENSION [None]
